FAERS Safety Report 5163644-8 (Version None)
Quarter: 2006Q4

REPORT INFORMATION
  Report Type: 
  Country: None (occurrence: None)
  Receive Date: 20061127
  Receipt Date: 20061127
  Transmission Date: 20070319
  Serious: Yes (Other)
  Sender: FDA-Public Use
  Company Number: None

PATIENT
  Age: 57 Year
  Sex: Male
  Weight: 77.1115 kg

DRUGS (1)
  1. FLONASE [Suspect]
     Indication: NASAL POLYPS
     Dosage: 2 SQUIRT EACH NOST
     Route: 045
     Dates: start: 19910101, end: 20061124

REACTIONS (1)
  - OSTEOPOROSIS [None]
